FAERS Safety Report 18583836 (Version 1)
Quarter: 2020Q4

REPORT INFORMATION
  Report Type: Spontaneous
  Country: US (occurrence: US)
  Receive Date: 20201207
  Receipt Date: 20201207
  Transmission Date: 20210114
  Serious: Yes (Hospitalization, Other)
  Sender: FDA-Public Use
  Company Number: US-VISTAPHARM, INC.-VER202011-002044

PATIENT
  Age: 51 Year
  Sex: Male

DRUGS (4)
  1. PHENYTOIN. [Suspect]
     Active Substance: PHENYTOIN
     Dosage: 200 MG
     Route: 048
  2. OMEPRAZOLE. [Concomitant]
     Active Substance: OMEPRAZOLE
     Indication: PRODUCT USED FOR UNKNOWN INDICATION
     Dosage: UNKNOWN
  3. PHENYTOIN. [Suspect]
     Active Substance: PHENYTOIN
     Dosage: 130 MG
     Route: 048
  4. PHENYTOIN. [Suspect]
     Active Substance: PHENYTOIN
     Indication: SEIZURE
     Dosage: 300 MG
     Route: 048

REACTIONS (6)
  - Dizziness [Unknown]
  - Mental status changes [Unknown]
  - Nystagmus [Unknown]
  - Ataxia [Unknown]
  - Fall [Unknown]
  - Toxicity to various agents [Unknown]
